FAERS Safety Report 10193677 (Version 1)
Quarter: 2014Q2

REPORT INFORMATION
  Report Type: Spontaneous
  Country: US (occurrence: US)
  Receive Date: 20140524
  Receipt Date: 20140524
  Transmission Date: 20141212
  Serious: No
  Sender: FDA-Public Use
  Company Number: US-SA-2013SA132416

PATIENT
  Age: 49 Year
  Sex: Female

DRUGS (2)
  1. SOLOSTAR [Suspect]
     Indication: TYPE 2 DIABETES MELLITUS
     Dosage: STARTED 6 MONTHS AGO
  2. LANTUS SOLOSTAR [Suspect]
     Indication: TYPE 2 DIABETES MELLITUS
     Dosage: STARTED 6 MONTHS AGO DOSE:25 UNIT(S)
     Route: 051

REACTIONS (4)
  - Feeling abnormal [Unknown]
  - Blood glucose increased [Unknown]
  - Injection site pain [Unknown]
  - Incorrect product storage [Unknown]
